FAERS Safety Report 8734001 (Version 2)
Quarter: 2012Q4

REPORT INFORMATION
  Report Type: Report from Study
  Country: IN (occurrence: IN)
  Receive Date: 20120821
  Receipt Date: 20121019
  Transmission Date: 20130627
  Serious: Yes (Death, Life-Threatening)
  Sender: FDA-Public Use
  Company Number: IN-AMGEN-INDCT2012052322

PATIENT
  Age: 64 Year
  Sex: Female
  Weight: 46 kg

DRUGS (18)
  1. DARBEPOETIN ALFA [Suspect]
     Indication: ANAEMIA OF MALIGNANT DISEASE
     Dosage: UNK
     Route: 058
     Dates: start: 20120818, end: 20120818
  2. FILGRASTIM [Concomitant]
     Indication: LEUKOPENIA
     Dosage: 300 mug, UNK
     Route: 030
     Dates: start: 20120818, end: 20120820
  3. PACLITAXEL [Concomitant]
     Indication: LUNG NEOPLASM MALIGNANT
     Dosage: 300 mg, q3wk
     Route: 042
     Dates: start: 20120811, end: 20120811
  4. CARBOPLATIN [Concomitant]
     Indication: LUNG NEOPLASM MALIGNANT
     Dosage: 450 mg, UNK
     Route: 042
     Dates: start: 20120812, end: 20120812
  5. GRANISETRON [Concomitant]
     Indication: PROPHYLAXIS
     Dosage: 3 mg, qd
     Route: 042
     Dates: start: 20120811, end: 20120812
  6. GRANISETRON [Concomitant]
     Indication: VOMITING
  7. DEXAMETHASONE [Concomitant]
     Indication: PROPHYLAXIS
     Dosage: 8 mg, qd
     Route: 042
     Dates: start: 20120811, end: 20120812
  8. DEXAMETHASONE [Concomitant]
     Indication: HYPERSENSITIVITY
  9. AMOXICILLIN SODIUM W/CLAVULANATE POTASSIUM [Concomitant]
     Indication: WHITE BLOOD CELL COUNT INCREASED
     Dosage: UNK
     Dates: start: 20120811, end: 20120820
  10. LACTULOSE [Concomitant]
     Indication: PROPHYLAXIS
     Dosage: UNK UNK, bid
     Route: 048
     Dates: start: 20120811, end: 20120820
  11. LACTULOSE [Concomitant]
     Indication: CONSTIPATION
  12. PANTOPRAZOLE [Concomitant]
     Indication: PROPHYLAXIS
     Dosage: 40 mg, bid
     Route: 048
     Dates: start: 20120811, end: 20120820
  13. DOMPERIDONE [Concomitant]
     Indication: PROPHYLAXIS
     Dosage: 10 mg, tid
     Route: 048
     Dates: start: 20120813, end: 20120818
  14. DOMPERIDONE [Concomitant]
     Indication: VOMITING
  15. CALCIUM CARBONATE [Concomitant]
     Indication: ASTHENIA
     Dates: start: 20120818, end: 20120820
  16. ONDANSETRON [Concomitant]
     Indication: VOMITING
     Dosage: UNK
     Dates: start: 20120813, end: 20120820
  17. TRAMADOL [Concomitant]
     Indication: PAIN
     Dosage: UNK
     Dates: start: 20120813, end: 20120818
  18. PROMETHAZINE [Concomitant]
     Indication: VOMITING
     Dates: start: 20120812, end: 20120816

REACTIONS (1)
  - Respiratory depression [Fatal]
